FAERS Safety Report 4996068-4 (Version None)
Quarter: 2006Q2

REPORT INFORMATION
  Report Type: 
  Country: None (occurrence: None)
  Receive Date: 20060508
  Receipt Date: 20060126
  Transmission Date: 20061013
  Serious: Yes (Hospitalization, Disabling)
  Sender: FDA-Public Use
  Company Number: US-MERCK-0601USA03588

PATIENT
  Age: 57 Year
  Sex: Male
  Weight: 91 kg

DRUGS (23)
  1. VIOXX [Suspect]
     Indication: OSTEOARTHRITIS
     Route: 048
     Dates: start: 20010116, end: 20040601
  2. MAXALT [Concomitant]
     Route: 048
     Dates: start: 20010601, end: 20041001
  3. HYDROCODONE BITARTRATE [Concomitant]
     Route: 065
     Dates: start: 20020801, end: 20030801
  4. TYLENOL (CAPLET) [Concomitant]
     Route: 065
     Dates: start: 20000801
  5. CELEBREX [Concomitant]
     Route: 065
     Dates: start: 19991215, end: 20031210
  6. GUAIFENESIN [Concomitant]
     Route: 065
  7. AZITHROMYCIN [Concomitant]
     Route: 065
  8. OXYMETAZOLINE HYDROCHLORIDE [Concomitant]
     Route: 065
  9. SILDENAFIL CITRATE [Concomitant]
     Route: 065
  10. [THERAPY UNSPECIFIED] [Concomitant]
     Route: 065
  11. CLOTRIMAZOLE [Concomitant]
     Route: 065
  12. CHLORHEXIDINE GLUCONATE [Concomitant]
     Route: 065
  13. PROMETHAZINE [Concomitant]
     Route: 065
  14. MECLIZINE [Concomitant]
     Route: 065
  15. FAMCICLOVIR [Concomitant]
     Route: 065
  16. FEXOFENADINE HYDROCHLORIDE [Concomitant]
     Route: 065
  17. DIAZEPAM [Concomitant]
     Route: 065
  18. FINASTERIDE [Concomitant]
     Route: 065
  19. LEVOFLOXACIN [Concomitant]
     Route: 065
  20. VIAGRA [Concomitant]
     Route: 065
  21. AMOXICILLIN [Concomitant]
     Route: 065
  22. RAMIPRIL [Concomitant]
     Route: 065
  23. ENTEX (NEW FORMULA) [Concomitant]
     Route: 065

REACTIONS (5)
  - BLOOD CHOLESTEROL INCREASED [None]
  - CEREBROVASCULAR ACCIDENT [None]
  - DEPRESSION [None]
  - HYPERTENSION [None]
  - HYPOVITAMINOSIS [None]
